FAERS Safety Report 7148280-6 (Version None)
Quarter: 2010Q4

REPORT INFORMATION
  Report Type: 
  Country: None (occurrence: None)
  Receive Date: 20101209
  Receipt Date: 20101129
  Transmission Date: 20110411
  Serious: Yes (Congenital Anomaly)
  Sender: FDA-Public Use
  Company Number: GB-PFIZER INC-2010149296

PATIENT
  Sex: Male

DRUGS (3)
  1. ETHOSUXIMIDE [Suspect]
     Dosage: 250 MG, 2X/DAY
     Route: 064
  2. TOPIRAMATE [Suspect]
     Indication: EPILEPSY
     Dosage: 25 MG, 3X/DAY
     Route: 064
  3. EPILIM [Suspect]
     Dosage: 500 MG, 2X/DAY
     Route: 064

REACTIONS (2)
  - DRUG EXPOSURE DURING PREGNANCY [None]
  - PYLORIC STENOSIS [None]
